FAERS Safety Report 8730555 (Version 3)
Quarter: 2012Q4

REPORT INFORMATION
  Report Type: 
  Country: US (occurrence: US)
  Receive Date: 20120817
  Receipt Date: 20120920
  Transmission Date: 20130627
  Serious: Yes (Hospitalization)
  Sender: FDA-Public Use
  Company Number: US-ASTRAZENECA-2012SE57011

PATIENT
  Age: 44 Year
  Sex: Male
  Weight: 110.2 kg

DRUGS (16)
  1. NEXIUM [Suspect]
     Route: 048
  2. PRILOSEC [Suspect]
     Route: 048
  3. XANAX [Concomitant]
  4. WELLBUTRIN XL [Concomitant]
  5. CELEBREX [Concomitant]
  6. FLEXERIL [Concomitant]
  7. DURAGESIC [Concomitant]
     Dosage: 75 MCG/HR
  8. FLONASE [Concomitant]
     Dosage: 50 MCG, 1 SPRAY BY NASAL, TWO TIMES DAILY
  9. NIZORAL [Concomitant]
  10. LIRAGLUTIDE [Concomitant]
     Dosage: 0.6 MG/ 0.1 ML
  11. CLARITIN [Concomitant]
  12. GLUCOPHAGE [Concomitant]
  13. ROXICODONE [Concomitant]
  14. LOFIBRA [Concomitant]
  15. GLUCOTROL [Concomitant]
  16. PREVACID OTC [Concomitant]

REACTIONS (15)
  - Chest pain [Unknown]
  - Gastrooesophageal reflux disease [Unknown]
  - Anxiety [Unknown]
  - Osteoarthritis [Unknown]
  - Diabetes mellitus [Unknown]
  - Pain [Unknown]
  - Obesity [Unknown]
  - Chest discomfort [Unknown]
  - Sleep apnoea syndrome [Unknown]
  - Rhinitis allergic [Unknown]
  - Hyperlipidaemia [Unknown]
  - General physical health deterioration [Unknown]
  - Depression [Unknown]
  - Drug dose omission [Unknown]
  - Drug ineffective [Unknown]
